FAERS Safety Report 19933831 (Version 1)
Quarter: 2021Q4

REPORT INFORMATION
  Report Type: Spontaneous
  Country: US (occurrence: US)
  Receive Date: 20211008
  Receipt Date: 20211008
  Transmission Date: 20220304
  Serious: No
  Sender: FDA-Public Use
  Company Number: MIQ-09102021-994(V1)

PATIENT

DRUGS (1)
  1. VYLEESI [Suspect]
     Active Substance: BREMELANOTIDE ACETATE
     Indication: Product used for unknown indication
     Dosage: 1.75 MG/0.3 ML 45 MINS BEFORE SEXUAL ACTIVITY
     Route: 058

REACTIONS (1)
  - Feeling abnormal [Recovered/Resolved]
